FAERS Safety Report 25474462 (Version 1)
Quarter: 2025Q2

REPORT INFORMATION
  Report Type: Spontaneous
  Country: US (occurrence: None)
  Receive Date: 20250624
  Receipt Date: 20250624
  Transmission Date: 20250717
  Serious: Yes (Other)
  Sender: FDA-CTU
  Company Number: None

PATIENT
  Sex: Female

DRUGS (11)
  1. LENALIDOMIDE [Suspect]
     Active Substance: LENALIDOMIDE
     Indication: Plasma cell myeloma
     Route: 048
     Dates: start: 20250211
  2. ACYCLOVIR [Concomitant]
     Active Substance: ACYCLOVIR
  3. ASCORBIC ACD [Concomitant]
  4. CALCIUM 600 TAB +D/MNRLS [Concomitant]
  5. DEXAMETHASONE [Concomitant]
     Active Substance: DEXAMETHASONE
  6. ELIQUIS [Concomitant]
     Active Substance: APIXABAN
  7. KP VITAMIN D [Concomitant]
  8. LASIX [Concomitant]
     Active Substance: FUROSEMIDE
  9. MULTIVITAMIN TAB ADLT 50+ [Concomitant]
  10. NEXIUM [Concomitant]
     Active Substance: ESOMEPRAZOLE MAGNESIUM
  11. PROCHLORPER [Concomitant]

REACTIONS (2)
  - Surgery [None]
  - Therapy interrupted [None]
